FAERS Safety Report 13772766 (Version 1)
Quarter: 2017Q3

REPORT INFORMATION
  Report Type: Spontaneous
  Country: US (occurrence: US)
  Receive Date: 20170720
  Receipt Date: 20170720
  Transmission Date: 20171127
  Serious: No
  Sender: FDA-Public Use
  Company Number: US-PERRIGO-17US001878

PATIENT
  Age: 26 Year
  Sex: Female
  Weight: 68.27 kg

DRUGS (2)
  1. MICONAZOLE 1 [Suspect]
     Active Substance: MICONAZOLE NITRATE
     Indication: VULVOVAGINAL MYCOTIC INFECTION
     Dosage: UNKNOWN, SINGLE
     Route: 067
     Dates: start: 20170221, end: 20170221
  2. AMOXICILLIN. [Concomitant]
     Active Substance: AMOXICILLIN
     Indication: PHARYNGITIS STREPTOCOCCAL
     Dosage: UNKNOWN, UNKNOWN
     Route: 048
     Dates: start: 20170216

REACTIONS (3)
  - Underdose [Recovered/Resolved]
  - Vulvovaginal swelling [Recovered/Resolved]
  - Vulvovaginal pain [Recovered/Resolved]

NARRATIVE: CASE EVENT DATE: 20170221
